FAERS Safety Report 6309816-8 (Version None)
Quarter: 2009Q3

REPORT INFORMATION
  Report Type: 
  Country: None (occurrence: None)
  Receive Date: 20090814
  Receipt Date: 20090804
  Transmission Date: 20100115
  Serious: Yes (Death, Hospitalization, Other)
  Sender: FDA-Public Use
  Company Number: JP-PFIZER INC-2009233442

PATIENT
  Age: 54 Year

DRUGS (14)
  1. GABAPEN [Suspect]
     Indication: PAIN
     Dosage: 300 MG, 8 TIMES PER DAY
     Route: 048
     Dates: start: 20071112, end: 20071119
  2. GABAPEN [Suspect]
     Dosage: UNK MG, 2X/DAY
     Dates: start: 20071019
  3. GABAPEN [Suspect]
     Dosage: UNK
     Dates: start: 20071020
  4. GABAPEN [Suspect]
     Dosage: UNK
     Dates: start: 20071023
  5. GABAPEN [Suspect]
     Dosage: UNK
     Dates: start: 20071108
  6. GABAPEN [Suspect]
     Dosage: UNK
     Dates: start: 20071109
  7. GABAPEN [Suspect]
     Dosage: 6X/DAY
     Dates: start: 20071110
  8. TRYPTANOL [Suspect]
     Indication: PAIN
     Route: 048
     Dates: start: 20071019
  9. ANPLAG [Suspect]
     Indication: PAIN
     Dosage: FREQUENCY: 3X/DAY,
     Route: 048
     Dates: start: 20071019
  10. ROPION [Suspect]
     Indication: PAIN
     Dosage: FREQUENCY: 4X/DAY,
     Route: 042
     Dates: start: 20071019
  11. MORPHINE HYDROCHLORIDE [Suspect]
     Indication: PAIN
     Dosage: 24 HOURS CONTINUSOUS INFUSION
     Route: 058
     Dates: start: 20071019
  12. FENTANYL [Suspect]
     Dosage: FREQUENCY: EVERY 72 HOURS;
     Route: 062
     Dates: start: 20071107, end: 20071119
  13. MAGNESIUM OXIDE [Concomitant]
     Route: 048
     Dates: start: 20071019
  14. MAGNESIUM SULFATE [Concomitant]
     Route: 042
     Dates: start: 20071019

REACTIONS (3)
  - DEHYDRATION [None]
  - NAUSEA [None]
  - NEOPLASM PROGRESSION [None]
